FAERS Safety Report 6053998-2 (Version None)
Quarter: 2009Q1

REPORT INFORMATION
  Report Type: 
  Country: None (occurrence: None)
  Receive Date: 20090127
  Receipt Date: 20090112
  Transmission Date: 20090719
  Serious: Yes (Other)
  Sender: FDA-Public Use
  Company Number: DE-ASTRAZENECA-2009SE00492

PATIENT
  Age: 26242 Day
  Sex: Female

DRUGS (7)
  1. METOPROLOL TARTRATE AND HYDROCHLOROTHIAZIDE [Suspect]
     Indication: HYPERTENSION
     Route: 048
  2. TOVIAZ [Suspect]
     Indication: URGE INCONTINENCE
     Route: 048
     Dates: start: 20081027
  3. METFORMIN HYDROCHLORIDE [Concomitant]
  4. GLIMEPIRIDE [Concomitant]
  5. RAMIPRIL [Concomitant]
  6. INSUMAN COMB 25 [Concomitant]
  7. ASS-RATIOPHARM [Concomitant]

REACTIONS (6)
  - BACK PAIN [None]
  - DIABETES MELLITUS INADEQUATE CONTROL [None]
  - DIZZINESS [None]
  - DRY MOUTH [None]
  - TRANSIENT ISCHAEMIC ATTACK [None]
  - VOMITING [None]
